FAERS Safety Report 5911694-3 (Version None)
Quarter: 2008Q4

REPORT INFORMATION
  Report Type: 
  Country: None (occurrence: None)
  Receive Date: 20081007
  Receipt Date: 20080929
  Transmission Date: 20090506
  Serious: Yes (Hospitalization)
  Sender: FDA-Public Use
  Company Number: US-ELI_LILLY_AND_COMPANY-US200809006648

PATIENT
  Sex: Male
  Weight: 147.39 kg

DRUGS (13)
  1. BYETTA [Suspect]
     Indication: TYPE 2 DIABETES MELLITUS
     Dosage: 5 UG, 2/D
     Route: 058
     Dates: start: 20050101
  2. BYETTA [Suspect]
     Dosage: 10 UG, 2/D
     Route: 058
  3. METFORMIN HCL [Concomitant]
     Indication: TYPE 2 DIABETES MELLITUS
     Dosage: 1000 MG, 2/D
  4. PLAVIX [Concomitant]
     Indication: OBSTRUCTION
     Dosage: 75 MG, DAILY (1/D)
  5. ASPIRIN [Concomitant]
     Dosage: 325 MG, DAILY (1/D)
  6. LOTREL [Concomitant]
     Indication: HYPERTENSION
     Dosage: UNK, EACH MORNING
  7. CORGARD [Concomitant]
     Indication: CARDIAC DISORDER
     Dosage: 40 MG, DAILY (1/D)
  8. FUROSEMIDE [Concomitant]
     Indication: FLUID RETENTION
     Dosage: 80 MG, EACH MORNING
  9. ALDACTONE [Concomitant]
     Indication: BLOOD PRESSURE
     Dosage: 25 MG, DAILY (1/D)
  10. PRECOSE [Concomitant]
     Indication: TYPE 2 DIABETES MELLITUS
     Dosage: 50 MG, 3/D
  11. NIASPAN [Concomitant]
     Indication: BLOOD CHOLESTEROL
     Dosage: UNK, EACH MORNING
  12. ZETIA [Concomitant]
     Indication: BLOOD CHOLESTEROL
     Dosage: 10 MG, EACH EVENING
  13. GARLIC [Concomitant]
     Dosage: UNK, DAILY (1/D)

REACTIONS (4)
  - BLOOD GLUCOSE INCREASED [None]
  - NON-CARDIAC CHEST PAIN [None]
  - SKIN ULCER [None]
  - WEIGHT DECREASED [None]
